FAERS Safety Report 4514295-7 (Version None)
Quarter: 2004Q4

REPORT INFORMATION
  Report Type: 
  Country: None (occurrence: None)
  Receive Date: 20041124
  Receipt Date: 20041105
  Transmission Date: 20050328
  Serious: Yes (Hospitalization)
  Sender: FDA-Public Use
  Company Number: FR_041105176

PATIENT
  Age: 45 Year
  Sex: Female

DRUGS (5)
  1. VANCOMYCIN HCL [Suspect]
     Dosage: 2 G/1 DAY
     Dates: start: 20040905, end: 20040917
  2. DEPAKENE [Concomitant]
  3. STABLON (TIANEPTINE) [Concomitant]
  4. ALEPSAL [Concomitant]
  5. XANAX (ALPRAZOLAM DUM) [Concomitant]

REACTIONS (5)
  - ANTINUCLEAR ANTIBODY POSITIVE [None]
  - ANTIPHOSPHOLIPID ANTIBODIES POSITIVE [None]
  - DNA ANTIBODY POSITIVE [None]
  - NEUTROPENIA [None]
  - THROMBOCYTOPENIA [None]
